FAERS Safety Report 8172667 (Version 2)
Quarter: 2013Q3

REPORT INFORMATION
  Report Type: Spontaneous
  Country: US (occurrence: US)
  Receive Date: 20111007
  Receipt Date: 20130826
  Transmission Date: 20140515
  Serious: Yes (Hospitalization)
  Sender: FDA-Public Use
  Company Number: US-B.I. PHARMACEUTICALS,INC./RIDGEFIELD-2011-BP-22793BP

PATIENT
  Sex: Female

DRUGS (4)
  1. COMBIVENT INHALATION AEROSOL [Suspect]
     Indication: CHRONIC OBSTRUCTIVE PULMONARY DISEASE
     Dosage: 6 PUF
     Route: 055
     Dates: start: 2002
  2. COMBIVENT INHALATION AEROSOL [Suspect]
     Indication: ASTHMA
     Dosage: DOSE PER APPLICATION:18MCG/103MCG
     Route: 055
     Dates: start: 1996, end: 201307
  3. COMBIVENT [Suspect]
     Indication: ASTHMA
     Dosage: DOSE PER APPLICATION:20MCG/100MCG DAILY DOSE:80MCG/400MCG
     Route: 055
     Dates: start: 201307
  4. HYDROCODONE [Concomitant]
     Indication: BACK PAIN

REACTIONS (5)
  - Liver disorder [Not Recovered/Not Resolved]
  - Oesophageal candidiasis [Not Recovered/Not Resolved]
  - Gingival pain [Not Recovered/Not Resolved]
  - Off label use [Not Recovered/Not Resolved]
  - Off label use [Recovered/Resolved]
